FAERS Safety Report 17750996 (Version 1)
Quarter: 2020Q2

REPORT INFORMATION
  Report Type: Spontaneous
  Country: US (occurrence: US)
  Receive Date: 20200506
  Receipt Date: 20200506
  Transmission Date: 20200714
  Serious: Yes (Hospitalization, Other)
  Sender: FDA-Public Use
  Company Number: NVSC2020US122257

PATIENT
  Age: 28 Year
  Sex: Female

DRUGS (2)
  1. PREDNISONE. [Suspect]
     Active Substance: PREDNISONE
     Indication: MULTIPLE SCLEROSIS
     Dosage: UNK
     Route: 048
  2. METHYLPREDNISOLONE. [Suspect]
     Active Substance: METHYLPREDNISOLONE
     Indication: MULTIPLE SCLEROSIS
     Dosage: UNK
     Route: 042

REACTIONS (10)
  - Reversible cerebral vasoconstriction syndrome [Recovering/Resolving]
  - Phonophobia [Unknown]
  - Headache [Unknown]
  - Vomiting [Unknown]
  - Locked-in syndrome [Unknown]
  - Muscular weakness [Unknown]
  - Pyrexia [Unknown]
  - Photophobia [Unknown]
  - Nausea [Unknown]
  - Encephalopathy [Unknown]
